FAERS Safety Report 16692678 (Version 2)
Quarter: 2019Q3

REPORT INFORMATION
  Report Type: Spontaneous
  Country: US (occurrence: US)
  Receive Date: 20190812
  Receipt Date: 20190821
  Transmission Date: 20191004
  Serious: No
  Sender: FDA-Public Use
  Company Number: US-PFIZER INC-2019339467

PATIENT
  Age: 75 Year
  Sex: Female
  Weight: 65.77 kg

DRUGS (2)
  1. PROTONIX [Suspect]
     Active Substance: PANTOPRAZOLE SODIUM
     Indication: GASTROOESOPHAGEAL REFLUX DISEASE
     Dosage: 40 MG, 1X/DAY (AT NIGHT )
     Route: 048
  2. PROTONIX [Suspect]
     Active Substance: PANTOPRAZOLE SODIUM
     Dosage: UNK

REACTIONS (2)
  - Body height decreased [Unknown]
  - Hypoacusis [Unknown]
